FAERS Safety Report 7608851-7 (Version None)
Quarter: 2011Q3

REPORT INFORMATION
  Report Type: 
  Country: None (occurrence: None)
  Receive Date: 20110714
  Receipt Date: 20110706
  Transmission Date: 20111222
  Serious: Yes (Other)
  Sender: FDA-Public Use
  Company Number: JP-PFIZER INC-2011150722

PATIENT
  Age: 40 Year
  Sex: Female

DRUGS (5)
  1. ETHAMBUTOL [Concomitant]
     Dosage: UNK
  2. CLARITHROMYCIN [Concomitant]
  3. WARFARIN SODIUM [Interacting]
     Indication: DEEP VEIN THROMBOSIS
     Dosage: 3 MG, 1X/DAY
     Route: 048
  4. MYCOBUTIN [Interacting]
     Dosage: UNK
     Route: 048
  5. RIFAMPICIN [Suspect]

REACTIONS (2)
  - INTERNATIONAL NORMALISED RATIO DECREASED [None]
  - DRUG INTERACTION [None]
